FAERS Safety Report 6199302-0 (Version None)
Quarter: 2009Q2

REPORT INFORMATION
  Report Type: 
  Country: None (occurrence: None)
  Receive Date: 20090522
  Receipt Date: 20090513
  Transmission Date: 20091009
  Serious: Yes (Hospitalization)
  Sender: FDA-Public Use
  Company Number: CA-JNJFOC-20090503434

PATIENT
  Sex: Male
  Weight: 81.6 kg

DRUGS (2)
  1. REMICADE [Suspect]
     Dosage: TOTAL OF 45 INFUSIONS
     Route: 042
  2. REMICADE [Suspect]
     Indication: RHEUMATOID ARTHRITIS
     Dosage: HAD 7 MONTH BREAK FROM 30-JUL-2008 TO 03-FEB-2009
     Route: 042

REACTIONS (1)
  - APPENDICITIS [None]
